FAERS Safety Report 18383524 (Version 2)
Quarter: 2020Q4

REPORT INFORMATION
  Report Type: Spontaneous
  Country: CL (occurrence: CL)
  Receive Date: 20201014
  Receipt Date: 20201122
  Transmission Date: 20210114
  Serious: Yes (Other)
  Sender: FDA-Public Use
  Company Number: NVSC2020CL274349

PATIENT

DRUGS (1)
  1. COSENTYX [Suspect]
     Active Substance: SECUKINUMAB
     Indication: PSORIASIS
     Dosage: UNK (STARTED SINCE 2 YEARS APPROXIMATELY)
     Route: 065

REACTIONS (3)
  - Epistaxis [Unknown]
  - Dermatitis bullous [Unknown]
  - Headache [Unknown]
